FAERS Safety Report 10366585 (Version 1)
Quarter: 2014Q3

REPORT INFORMATION
  Report Type: Spontaneous
  Country: US (occurrence: US)
  Receive Date: 20140806
  Receipt Date: 20140806
  Transmission Date: 20150326
  Serious: No
  Sender: FDA-Public Use
  Company Number: US-ENDO PHARMACEUTICALS INC.-MONT20140008

PATIENT
  Sex: Female

DRUGS (1)
  1. MONTELUKAST SODIUM TABLETS 10MG [Suspect]
     Active Substance: MONTELUKAST SODIUM
     Indication: SINUS HEADACHE
     Route: 048

REACTIONS (3)
  - Headache [None]
  - Drug ineffective [Recovered/Resolved]
  - Tension headache [Recovered/Resolved]
